FAERS Safety Report 4905424-1 (Version None)
Quarter: 2006Q1

REPORT INFORMATION
  Report Type: 
  Country: None (occurrence: None)
  Receive Date: 20060208
  Receipt Date: 20060131
  Transmission Date: 20060701
  Serious: Yes (Life-Threatening, Hospitalization)
  Sender: FDA-Public Use
  Company Number: GB-MERCK-0602GBR00013

PATIENT
  Age: 59 Year
  Sex: Female
  Weight: 76 kg

DRUGS (8)
  1. ZOCOR [Suspect]
     Indication: HYPERCHOLESTEROLAEMIA
     Route: 048
     Dates: start: 20051101, end: 20060110
  2. ZOCOR [Suspect]
     Route: 048
     Dates: end: 20051031
  3. FUROSEMIDE [Concomitant]
     Indication: OEDEMA PERIPHERAL
     Route: 048
     Dates: end: 20060114
  4. ALLOPURINOL [Concomitant]
     Indication: GOUT
     Route: 048
     Dates: end: 20060111
  5. SOTALOL HYDROCHLORIDE [Concomitant]
     Indication: SUPRAVENTRICULAR TACHYCARDIA
     Route: 048
     Dates: start: 20050101, end: 20060109
  6. DILTIAZEM HYDROCHLORIDE [Concomitant]
     Indication: HYPERTENSION
     Route: 048
     Dates: end: 20060113
  7. PREDNISOLONE [Concomitant]
     Route: 048
     Dates: start: 20051201
  8. [COMPOSITION UNSPECIFIED] [Concomitant]
     Route: 065

REACTIONS (3)
  - ELECTROCARDIOGRAM QT PROLONGED [None]
  - MUSCULAR WEAKNESS [None]
  - URINE OUTPUT DECREASED [None]
